FAERS Safety Report 4640552-X (Version None)
Quarter: 2005Q2

REPORT INFORMATION
  Report Type: 
  Country: None (occurrence: None)
  Receive Date: 20050418
  Receipt Date: 20050411
  Transmission Date: 20051028
  Serious: Yes (Other)
  Sender: FDA-Public Use
  Company Number: 2005-02-0591

PATIENT
  Sex: Female

DRUGS (1)
  1. CLARITIN-D [Suspect]
     Dosage: ORAL
     Route: 048
     Dates: start: 20050206, end: 20050206

REACTIONS (4)
  - CRYING [None]
  - HALLUCINATION [None]
  - INSOMNIA [None]
  - SENSORY DISTURBANCE [None]
